FAERS Safety Report 9672116 (Version 1)
Quarter: 2013Q4

REPORT INFORMATION
  Report Type: Spontaneous
  Country: PE (occurrence: PE)
  Receive Date: 20131106
  Receipt Date: 20131106
  Transmission Date: 20140711
  Serious: Yes (Other)
  Sender: FDA-Public Use
  Company Number: PE-JNJFOC-20131018052

PATIENT
  Age: 60 Year
  Sex: Male

DRUGS (1)
  1. ZYTIGA [Suspect]
     Indication: CHEMOTHERAPY
     Route: 048
     Dates: start: 201309

REACTIONS (2)
  - Urinary tract obstruction [Unknown]
  - Constipation [Unknown]
